FAERS Safety Report 5809045-8 (Version None)
Quarter: 2008Q3

REPORT INFORMATION
  Report Type: 
  Country: None (occurrence: None)
  Receive Date: 20080711
  Receipt Date: 20080711
  Transmission Date: 20090109
  Serious: Yes (Other)
  Sender: FDA-Public Use
  Company Number: None

PATIENT
  Sex: Female
  Weight: 85.7298 kg

DRUGS (2)
  1. ZIAC [Suspect]
     Indication: HYPERTENSION
     Dosage: 10 MG ONCE DAILY PO
     Route: 048
     Dates: start: 19980101
  2. ZOLOFT [Suspect]
     Indication: DEPRESSION
     Dosage: 25MG ONCE DAILY PO
     Route: 048
     Dates: start: 20050101

REACTIONS (2)
  - NAUSEA [None]
  - PHARMACEUTICAL PRODUCT COMPLAINT [None]
